FAERS Safety Report 5364005-9 (Version None)
Quarter: 2007Q2

REPORT INFORMATION
  Report Type: 
  Country: None (occurrence: None)
  Receive Date: 20070620
  Receipt Date: 20070611
  Transmission Date: 20071010
  Serious: Yes (Other)
  Sender: FDA-Public Use
  Company Number: US-ELI_LILLY_AND_COMPANY-US200704004087

PATIENT
  Age: 64 Year
  Sex: Female

DRUGS (25)
  1. LYRICA [Concomitant]
     Dosage: 50 MG, DAILY (1/D)
     Dates: start: 20061121
  2. LYRICA [Concomitant]
     Dosage: 50 MG, 2/D
     Dates: start: 20061212
  3. LYRICA [Concomitant]
     Dosage: 50 MG, DAILY (1/D)
     Dates: start: 20070101
  4. LYRICA [Concomitant]
     Dosage: 75 MG, 3/D
     Dates: end: 20061001
  5. ENALAPRIL [Concomitant]
     Dosage: 10 MG, QOD
     Route: 048
  6. ENALAPRIL W/HYDROCHLOROTHIAZIDE [Concomitant]
     Dosage: UNK MG, UNK
     Dates: start: 20060101, end: 20070101
  7. ENALAPRIL W/HYDROCHLOROTHIAZIDE [Concomitant]
     Dosage: 1 D/F, QOD
     Dates: end: 20061011
  8. CELEBREX [Concomitant]
     Dosage: 200 MG, 2/D
  9. SYNTHROID [Concomitant]
     Indication: HYPOTHYROIDISM
     Dosage: 0.112 MG, DAILY (1/D)
  10. LUNESTA [Concomitant]
     Dosage: 3 MG, EACH EVENING
  11. PROVIGIL [Concomitant]
     Indication: SOMNOLENCE
     Dosage: 200 MG, 2/D
  12. LASIX [Concomitant]
  13. MIRALAX [Concomitant]
  14. MIRAPEX [Concomitant]
     Indication: RESTLESS LEGS SYNDROME
     Dosage: 0.025 MG, UNK
  15. MULTIVITAMIN [Concomitant]
  16. OMEGA 3 [Concomitant]
  17. REGLAN [Concomitant]
     Dosage: 10 MG, UNK
  18. LORTAB [Concomitant]
     Indication: PAIN
     Dosage: 1 D/F, AS NEEDED
  19. OXYGEN [Concomitant]
     Indication: SLEEP APNOEA SYNDROME
  20. LEXAPRO [Concomitant]
     Dosage: 10 MG, DAILY (1/D)
     Dates: start: 20070201
  21. ESTRASORB [Concomitant]
     Route: 061
  22. AMBIEN [Concomitant]
     Dosage: 10 MG, UNK
     Dates: start: 20070201
  23. VITAMIN B-12 [Concomitant]
  24. CYMBALTA [Suspect]
     Indication: PAIN
     Dosage: 60 MG, DAILY (1/D)
     Dates: end: 20070220
  25. METHADONE HCL [Concomitant]
     Indication: PAIN
     Dosage: 10 MG, DAILY (1/D)

REACTIONS (15)
  - ANXIETY [None]
  - ARTHRALGIA [None]
  - ASTHENIA [None]
  - DISTURBANCE IN ATTENTION [None]
  - DIZZINESS [None]
  - DRUG INEFFECTIVE [None]
  - FALL [None]
  - FATIGUE [None]
  - GASTRIC BYPASS [None]
  - HEADACHE [None]
  - HYPONATRAEMIA [None]
  - IRRITABILITY [None]
  - MUSCULOSKELETAL PAIN [None]
  - OEDEMA [None]
  - ROTATOR CUFF REPAIR [None]
